FAERS Safety Report 7909877-6 (Version None)
Quarter: 2011Q4

REPORT INFORMATION
  Report Type: 
  Country: None (occurrence: None)
  Receive Date: 20111111
  Receipt Date: 20111107
  Transmission Date: 20120403
  Serious: Yes (Other)
  Sender: FDA-Public Use
  Company Number: US-CELGENEUS-163-21880-11110922

PATIENT
  Sex: Male

DRUGS (10)
  1. REVLIMID [Suspect]
     Dosage: 15 MILLIGRAM
     Route: 048
     Dates: start: 20110601
  2. ASPIRIN [Concomitant]
     Route: 065
  3. CALCIUM [Concomitant]
     Route: 065
  4. REVLIMID [Suspect]
     Indication: MULTIPLE MYELOMA
     Dosage: 25 MILLIGRAM
     Route: 048
     Dates: start: 20100301
  5. LYRICA [Concomitant]
     Route: 065
  6. TRIAMTERENE AND HYDROCHLOROTHIAZIDE [Concomitant]
     Route: 065
  7. BENAZEPRIL HYDROCHLORIDE [Concomitant]
     Route: 065
  8. MULTI-VITAMIN [Concomitant]
     Route: 065
  9. VITAMIN B-12 [Concomitant]
     Route: 065
  10. VOLTAREN [Concomitant]
     Route: 065

REACTIONS (1)
  - HERNIA [None]
